FAERS Safety Report 9978390 (Version 1)
Quarter: 2014Q1

REPORT INFORMATION
  Report Type: Report from Study
  Country: US (occurrence: US)
  Receive Date: 20140306
  Receipt Date: 20140306
  Transmission Date: 20141002
  Serious: No
  Sender: FDA-Public Use
  Company Number: US-ABBVIE-13P-163-1171420-00

PATIENT
  Age: 69 Year
  Sex: Female

DRUGS (6)
  1. HUMIRA [Suspect]
     Indication: COLITIS ULCERATIVE
     Dates: start: 20130823
  2. METFORMIN [Concomitant]
     Indication: PRODUCT USED FOR UNKNOWN INDICATION
  3. VITAMINS [Concomitant]
     Indication: PRODUCT USED FOR UNKNOWN INDICATION
  4. FIBER [Concomitant]
     Indication: PRODUCT USED FOR UNKNOWN INDICATION
  5. IRON [Concomitant]
     Indication: PRODUCT USED FOR UNKNOWN INDICATION
  6. CALCIUM [Concomitant]
     Indication: PRODUCT USED FOR UNKNOWN INDICATION

REACTIONS (2)
  - Food allergy [Recovering/Resolving]
  - Urticaria [Recovering/Resolving]
